FAERS Safety Report 6471460-X (Version None)
Quarter: 2009Q4

REPORT INFORMATION
  Report Type: 
  Country: None (occurrence: None)
  Receive Date: 20091203
  Receipt Date: 20080519
  Transmission Date: 20100525
  Serious: Yes (Hospitalization)
  Sender: FDA-Public Use
  Company Number: US-ELI_LILLY_AND_COMPANY-US200803000224

PATIENT
  Age: 51 Year
  Sex: Female

DRUGS (3)
  1. BYETTA [Suspect]
     Dosage: 5 UG, 2/D
  2. METFORMIN HCL [Concomitant]
     Indication: TYPE 2 DIABETES MELLITUS
  3. ACTOS [Concomitant]
     Indication: TYPE 2 DIABETES MELLITUS

REACTIONS (2)
  - CHOLECYSTITIS ACUTE [None]
  - CHOLELITHIASIS [None]
